FAERS Safety Report 6405961-7 (Version None)
Quarter: 2009Q4

REPORT INFORMATION
  Report Type: 
  Country: None (occurrence: None)
  Receive Date: 20091016
  Receipt Date: 20091016
  Transmission Date: 20100525
  Serious: Yes (Hospitalization)
  Sender: FDA-Public Use
  Company Number: None

PATIENT
  Age: 66 Year
  Sex: Female
  Weight: 148 kg

DRUGS (2)
  1. NAFCILLIN SODIUM [Suspect]
     Indication: CELLULITIS
     Dosage: 2 GRAMS Q 4 HOURS IV
     Route: 042
     Dates: start: 20090917, end: 20090920
  2. LEVOFLOXACIN [Suspect]
     Indication: CELLULITIS
     Dosage: UNKNOWN DOSE DAILY PO
     Route: 048
     Dates: start: 20090903, end: 20090917

REACTIONS (3)
  - BLOOD CREATININE INCREASED [None]
  - RASH [None]
  - RENAL IMPAIRMENT [None]
